FAERS Safety Report 8785353 (Version 2)
Quarter: 2012Q4

REPORT INFORMATION
  Report Type: 
  Country: US (occurrence: US)
  Receive Date: 20120914
  Receipt Date: 20121003
  Transmission Date: 20130627
  Serious: No
  Sender: FDA-Public Use
  Company Number: US-VERTEX PHARMACEUTICAL INC.-2012-020712

PATIENT
  Age: 61 None
  Sex: Male
  Weight: 84 kg

DRUGS (7)
  1. VX-950 [Suspect]
     Indication: HEPATITIS C
     Dosage: 750 mg, tid
     Dates: start: 20120810
  2. RIBAVIRIN [Concomitant]
     Indication: HEPATITIS C
     Dosage: 600 mg, bid
     Route: 048
     Dates: start: 20120818
  3. PEGASYS [Concomitant]
     Indication: HEPATITIS C
     Dosage: 180 ?g, UNK
     Route: 058
     Dates: start: 20120818
  4. JANUMET [Concomitant]
     Indication: DIABETES MELLITUS
     Dosage: 2 DF, bid
     Route: 048
  5. BENADRYL                           /00000402/ [Concomitant]
  6. ADVIL                              /00044201/ [Concomitant]
  7. TYLENOL /00020001/ [Concomitant]

REACTIONS (4)
  - Hunger [Not Recovered/Not Resolved]
  - Decreased appetite [Recovered/Resolved]
  - Fatigue [Not Recovered/Not Resolved]
  - Rash [Recovered/Resolved]
